FAERS Safety Report 5071495-8 (Version None)
Quarter: 2006Q3

REPORT INFORMATION
  Report Type: 
  Country: None (occurrence: None)
  Receive Date: 20060803
  Receipt Date: 20060803
  Transmission Date: 20061208
  Serious: Yes (Hospitalization, Other)
  Sender: FDA-Public Use
  Company Number: None

PATIENT
  Age: 68 Year
  Sex: Female
  Weight: 80.7403 kg

DRUGS (3)
  1. TAMIFLU [Suspect]
     Indication: INFLUENZA
     Dosage: 75 MG, QOD, ORAL
     Route: 048
     Dates: start: 20060703
  2. PROBENECID [Suspect]
     Indication: DRUG THERAPY
     Dosage: 500 MG, QID,ORAL
     Route: 048
     Dates: start: 20060717
  3. ASPIRIN [Concomitant]

REACTIONS (2)
  - PETECHIAE [None]
  - THROMBOCYTOPENIA [None]
